FAERS Safety Report 4330195-X (Version None)
Quarter: 2004Q1

REPORT INFORMATION
  Report Type: 
  Country: None (occurrence: None)
  Receive Date: 20040329
  Receipt Date: 20040322
  Transmission Date: 20041129
  Serious: Yes (Hospitalization)
  Sender: FDA-Public Use
  Company Number: 2004201594US

PATIENT
  Age: 75 Year
  Sex: Female

DRUGS (11)
  1. MIRAPEX [Suspect]
     Indication: PARKINSON'S DISEASE
     Dosage: 50 UG, TID, ORAL; 75 UG, TID, ORAL
     Route: 048
     Dates: end: 20031101
  2. MIRAPEX [Suspect]
     Indication: PARKINSON'S DISEASE
     Dosage: 50 UG, TID, ORAL; 75 UG, TID, ORAL
     Route: 048
     Dates: start: 20031101
  3. XANAX [Suspect]
     Indication: ANXIETY
     Dosage: ORAL
     Route: 048
  4. SINEMET [Concomitant]
  5. LASIX [Concomitant]
  6. ZAROXOLYN [Concomitant]
  7. TOPROL-XL [Concomitant]
  8. CLONIDINE [Concomitant]
  9. VICODIN [Concomitant]
  10. POTASSIUM CHLORIDE [Concomitant]
  11. SYNTHROID [Concomitant]

REACTIONS (9)
  - AGGRESSION [None]
  - ANXIETY [None]
  - CONFUSIONAL STATE [None]
  - FAMILY STRESS [None]
  - INSOMNIA [None]
  - MENTAL DISORDER [None]
  - PERSONALITY CHANGE [None]
  - SUSPICIOUSNESS [None]
  - TREMOR [None]
